FAERS Safety Report 9843799 (Version 1)
Quarter: 2013Q4

REPORT INFORMATION
  Report Type: Spontaneous
  Country: US (occurrence: None)
  Receive Date: 20131223
  Receipt Date: 20131223
  Transmission Date: 20140711
  Serious: Yes (Other)
  Sender: FDA-Public Use
  Company Number: 1000049955

PATIENT
  Sex: Female

DRUGS (5)
  1. LINZESS (LINACLOTIDE) (145 MICROGRAM, CAPSULES) [Suspect]
     Indication: IRRITABLE BOWEL SYNDROME
     Route: 048
     Dates: start: 20131009
  2. LINZESS (LINACLOTIDE) (145 MICROGRAM, CAPSULES) [Suspect]
     Indication: NAUSEA
     Route: 048
     Dates: start: 20131009
  3. VITAMIN D (VITAMIN D) (VITAMIN D) [Concomitant]
  4. CELEXA (CITALOPRAM HYDROBROMIDE) (CITALOPRAM HYDROBROMIDE) [Concomitant]
  5. SLEEPING PILL NOS (SLEEPING PILL NOS) (SLEEPING PILL NOS) [Concomitant]

REACTIONS (1)
  - Diarrhoea [None]
